FAERS Safety Report 12545641 (Version 1)
Quarter: 2016Q3

REPORT INFORMATION
  Report Type: Spontaneous
  Country: US (occurrence: US)
  Receive Date: 20160711
  Receipt Date: 20160711
  Transmission Date: 20161109
  Serious: No
  Sender: FDA-Public Use
  Company Number: US-ELI_LILLY_AND_COMPANY-US201606008404

PATIENT
  Sex: Male

DRUGS (9)
  1. CIALIS [Suspect]
     Active Substance: TADALAFIL
     Dosage: 20 MG, PRN
     Route: 065
  2. FLOVENT [Concomitant]
     Active Substance: FLUTICASONE PROPIONATE
     Dosage: UNK, PRN
  3. VITAMIN D [Concomitant]
     Active Substance: CHOLECALCIFEROL
  4. ECONAZOLE [Concomitant]
     Active Substance: ECONAZOLE
     Indication: ONYCHOMYCOSIS
  5. UREA. [Concomitant]
     Active Substance: UREA
     Indication: DRY SKIN
  6. CENTRUM SILVER                     /02363801/ [Concomitant]
     Active Substance: MINERALS\VITAMINS
     Dosage: UNK
  7. CIALIS [Suspect]
     Active Substance: TADALAFIL
     Indication: ERECTILE DYSFUNCTION
     Dosage: 5 MG, QD
     Route: 048
     Dates: start: 201603
  8. QUINAPRIL. [Concomitant]
     Active Substance: QUINAPRIL
  9. VITAMIIN C [Concomitant]
     Active Substance: ASCORBIC ACID

REACTIONS (4)
  - Intentional product misuse [Unknown]
  - Spontaneous penile erection [Unknown]
  - Drug effect delayed [Unknown]
  - Fatigue [Unknown]
